FAERS Safety Report 13338934 (Version 2)
Quarter: 2017Q2

REPORT INFORMATION
  Report Type: Spontaneous
  Country: US (occurrence: US)
  Receive Date: 20170315
  Receipt Date: 20170403
  Transmission Date: 20170830
  Serious: Yes (Other)
  Sender: FDA-Public Use
  Company Number: US-IPSEN BIOPHARMACEUTICALS, INC.-2017-00808

PATIENT
  Sex: Female

DRUGS (17)
  1. DYSPORT [Suspect]
     Active Substance: ABOBOTULINUMTOXINA
     Indication: OFF LABEL USE
     Dosage: NOT REPORTED
     Route: 065
     Dates: start: 20170127, end: 20170127
  2. NITROFURANTOIN. [Concomitant]
     Active Substance: NITROFURANTOIN
  3. ARNUITY ELLIPTA [Concomitant]
     Active Substance: FLUTICASONE FUROATE
  4. CALCIUM AND VITAMIN D [Concomitant]
     Active Substance: CALCIUM\VITAMIN D
     Dosage: 1500 MG
  5. MUPIROCIN. [Concomitant]
     Active Substance: MUPIROCIN
  6. PROAIR HFA [Concomitant]
     Active Substance: ALBUTEROL SULFATE
  7. DYSPORT [Suspect]
     Active Substance: ABOBOTULINUMTOXINA
     Indication: POST-TRAUMATIC HEADACHE
     Dosage: NOT REPORTED
     Route: 065
     Dates: start: 20161011, end: 20161011
  8. AUBAGIO [Concomitant]
     Active Substance: TERIFLUNOMIDE
  9. VITAMIN D3 [Concomitant]
     Active Substance: CHOLECALCIFEROL
  10. OLOPATADINE. [Concomitant]
     Active Substance: OLOPATADINE
  11. VITAMIN C [Concomitant]
     Active Substance: ASCORBIC ACID
  12. BACLOFEN. [Concomitant]
     Active Substance: BACLOFEN
  13. LIDOCAINE. [Concomitant]
     Active Substance: LIDOCAINE
  14. AZELASTINE [Concomitant]
     Active Substance: AZELASTINE
  15. BUDESONIDE. [Concomitant]
     Active Substance: BUDESONIDE
  16. OMEGA 3 FISH OIL [Concomitant]
     Active Substance: FISH OIL\OMEGA-3 FATTY ACIDS
  17. ESTROVEN MAX STRENGHT [Concomitant]

REACTIONS (4)
  - Surgery [Unknown]
  - Off label use [Unknown]
  - Drug ineffective for unapproved indication [Unknown]
  - Myalgia [Recovering/Resolving]

NARRATIVE: CASE EVENT DATE: 20161012
